FAERS Safety Report 9290057 (Version 1)
Quarter: 2013Q2

REPORT INFORMATION
  Report Type: Spontaneous
  Country: IL (occurrence: None)
  Receive Date: 20130510
  Receipt Date: 20130510
  Transmission Date: 20140414
  Serious: Yes (Life-Threatening, Other)
  Sender: FDA-Public Use
  Company Number: 2013P1005398

PATIENT
  Age: 86 Year
  Sex: 0

DRUGS (1)
  1. HYDROCORTISONE [Suspect]

REACTIONS (2)
  - Stridor [None]
  - Respiratory failure [None]
